FAERS Safety Report 9940534 (Version 1)
Quarter: 2014Q1

REPORT INFORMATION
  Report Type: Report from Study
  Country: US (occurrence: US)
  Receive Date: 20140303
  Receipt Date: 20140303
  Transmission Date: 20141002
  Serious: Yes (Life-Threatening, Other)
  Sender: FDA-Public Use
  Company Number: PHEH2014US003715

PATIENT
  Sex: Female

DRUGS (1)
  1. TEGRETOL [Suspect]
     Dosage: UNK UKN, UNK

REACTIONS (12)
  - Apparent death [Unknown]
  - Coma [Unknown]
  - Brain injury [Unknown]
  - Necrosis [Unknown]
  - Diabetes mellitus [Unknown]
  - Immune system disorder [Unknown]
  - Stress fracture [Unknown]
  - Convulsion [Unknown]
  - Neoplasm malignant [Unknown]
  - Arthropod bite [Unknown]
  - Nephrolithiasis [Unknown]
  - Malaise [Unknown]
